FAERS Safety Report 10060316 (Version 2)
Quarter: 2014Q2

REPORT INFORMATION
  Report Type: Spontaneous
  Country: US (occurrence: US)
  Receive Date: 20140404
  Receipt Date: 20140404
  Transmission Date: 20141212
  Serious: Yes (Life-Threatening, Hospitalization, Other)
  Sender: FDA-Public Use
  Company Number: US-IAC JAPAN XML-USA-2014-0111934

PATIENT
  Age: 67 Year
  Sex: Female
  Weight: 60.77 kg

DRUGS (2)
  1. BUTRANS [Suspect]
     Indication: PAIN
     Dosage: 5 MCG/HR, WEEKLY
     Route: 062
     Dates: start: 20140115, end: 20140117
  2. OXYCODONE HCL CR TABLETS (SIMILAR TO NDA 22-272) [Suspect]
     Indication: PAIN
     Dosage: 10 MG, Q8H
     Dates: start: 20140115

REACTIONS (6)
  - Acute respiratory failure [Unknown]
  - Lethargy [Unknown]
  - Hypotension [Unknown]
  - Oxygen saturation decreased [Unknown]
  - Back pain [Unknown]
  - Hypoaesthesia [Unknown]
